FAERS Safety Report 24002749 (Version 1)
Quarter: 2024Q2

REPORT INFORMATION
  Report Type: Report from Study
  Country: US (occurrence: US)
  Receive Date: 20240624
  Receipt Date: 20240624
  Transmission Date: 20240716
  Serious: Yes (Other)
  Sender: FDA-Public Use
  Company Number: US-ABBVIE-5810591

PATIENT
  Sex: Female
  Weight: 38.555 kg

DRUGS (5)
  1. SYNTHROID [Suspect]
     Active Substance: LEVOTHYROXINE SODIUM
     Indication: Hypothyroidism
     Dosage: FORM STRENGTH: 75 MICROGRAM, ?FREQUENCY TEXT: ONCE A  DAY, 6 DAYS A WEEK, ?DURATION TEXT: 1 TAB M...
     Route: 048
     Dates: start: 1977
  2. SYNTHROID [Suspect]
     Active Substance: LEVOTHYROXINE SODIUM
     Indication: Hypothyroidism
     Dosage: FORM STRENGTH: 75 MICROGRAM, ?FREQUENCY TEXT: ONCE A  DAY, 6 DAYS A WEEK, ?DURATION TEXT: 1 TAB M...
     Route: 048
  3. LIPITOR [Concomitant]
     Active Substance: ATORVASTATIN CALCIUM
     Indication: Product used for unknown indication
     Route: 065
  4. ATORVASTATIN [Concomitant]
     Active Substance: ATORVASTATIN
     Indication: Blood cholesterol abnormal
     Route: 065
  5. VITAMIN D [Concomitant]
     Active Substance: VITAMIN D NOS
     Indication: Vitamin D deficiency
     Dosage: 1000 IU (INTERNATIONAL UNIT)
     Route: 065

REACTIONS (3)
  - Cataract [Not Recovered/Not Resolved]
  - Astigmatism [Not Recovered/Not Resolved]
  - Corneal oedema [Recovered/Resolved]

NARRATIVE: CASE EVENT DATE: 20230101
